FAERS Safety Report 8379709-3 (Version None)
Quarter: 2012Q2

REPORT INFORMATION
  Report Type: 
  Country: None (occurrence: None)
  Receive Date: 20120523
  Receipt Date: 20120517
  Transmission Date: 20120825
  Serious: Yes (Death)
  Sender: FDA-Public Use
  Company Number: US-JNJFOC-20120516629

PATIENT

DRUGS (4)
  1. AMOXICILLIN [Suspect]
     Indication: INFECTION
     Route: 065
  2. LEVOFLOXACIN [Suspect]
     Indication: INFECTION
     Route: 065
  3. AZITHROMYCIN [Suspect]
     Indication: INFECTION
     Route: 065
  4. CIPROFLOXACIN [Suspect]
     Indication: INFECTION
     Route: 065

REACTIONS (2)
  - DEATH [None]
  - CARDIOVASCULAR DISORDER [None]
